FAERS Safety Report 16473862 (Version 1)
Quarter: 2019Q2

REPORT INFORMATION
  Report Type: Spontaneous
  Country: US (occurrence: US)
  Receive Date: 20190625
  Receipt Date: 20190625
  Transmission Date: 20190711
  Serious: Yes (Hospitalization)
  Sender: FDA-Public Use
  Company Number: PHEH2019US026063

PATIENT
  Age: 2 Year
  Sex: Male

DRUGS (1)
  1. MEKINIST [Suspect]
     Active Substance: TRAMETINIB DIMETHYL SULFOXIDE
     Indication: BRAIN NEOPLASM MALIGNANT
     Dosage: 0.36 MG/ML, QD (1 TABLET IN 10 ML WATER AND TOOK 7.2 ML SOLUTION)
     Route: 048
     Dates: start: 20181024

REACTIONS (3)
  - Wrong technique in product usage process [Unknown]
  - Gastrointestinal infection [Unknown]
  - Product use issue [Unknown]

NARRATIVE: CASE EVENT DATE: 20181024
